FAERS Safety Report 9465846 (Version 1)
Quarter: 2013Q3

REPORT INFORMATION
  Report Type: Spontaneous
  Country: US (occurrence: US)
  Receive Date: 20130820
  Receipt Date: 20130820
  Transmission Date: 20140515
  Serious: Yes (Other)
  Sender: FDA-Public Use
  Company Number: US-PFIZER INC-2013238985

PATIENT
  Age: 27 Year
  Sex: Female
  Weight: 118 kg

DRUGS (1)
  1. LYRICA [Suspect]
     Indication: TRIGEMINAL NEURALGIA
     Dosage: 150 MG, 3X/DAY
     Dates: start: 2013, end: 20130815

REACTIONS (2)
  - Convulsion [Recovered/Resolved]
  - Mania [Recovered/Resolved]
